FAERS Safety Report 4310545-0 (Version None)
Quarter: 2004Q1

REPORT INFORMATION
  Report Type: 
  Country: None (occurrence: None)
  Receive Date: 20040303
  Receipt Date: 20040105
  Transmission Date: 20041129
  Serious: Yes (Other)
  Sender: FDA-Public Use
  Company Number: FR-GLAXOSMITHKLINE-B0318805A

PATIENT
  Age: 83 Year
  Sex: Male

DRUGS (8)
  1. AUGMENTIN [Suspect]
     Indication: STAPHYLOCOCCAL SEPSIS
     Route: 050
     Dates: start: 20031227, end: 20031231
  2. CLAMOXYL [Suspect]
     Indication: STAPHYLOCOCCAL SEPSIS
     Dosage: 1G THREE TIMES PER DAY
     Route: 048
     Dates: start: 20031230, end: 20031231
  3. RIFADIN [Concomitant]
     Indication: STAPHYLOCOCCAL SEPSIS
     Dosage: 600MG TWICE PER DAY
     Route: 048
  4. FOSFOMYCINE [Concomitant]
     Indication: STAPHYLOCOCCAL SEPSIS
     Dosage: 4G THREE TIMES PER DAY
     Route: 042
  5. PREVISCAN [Concomitant]
     Dosage: 5MG PER DAY
     Route: 048
     Dates: start: 20031203, end: 20031210
  6. CARDENSIEL [Concomitant]
     Dosage: 2.5MG PER DAY
     Route: 048
  7. NITRIDERM [Concomitant]
     Route: 062
  8. BURINEX [Concomitant]
     Dosage: 5MG TWICE PER DAY
     Route: 048

REACTIONS (3)
  - CONFUSIONAL STATE [None]
  - ENCEPHALOPATHY [None]
  - MYOCLONUS [None]
